FAERS Safety Report 8963210 (Version 1)
Quarter: 2012Q4

REPORT INFORMATION
  Report Type: 
  Country: AT (occurrence: AT)
  Receive Date: 20121214
  Receipt Date: 20121214
  Transmission Date: 20130627
  Serious: Yes (Other)
  Sender: FDA-Public Use
  Company Number: AT-COVIDIEN/TYCO HEALTHCARE/MALLINCKRODT-T201204304

PATIENT
  Age: 6 Year
  Sex: Male

DRUGS (1)
  1. METHYLIN [Suspect]
     Indication: ATTENTION DEFICIT/HYPERACTIVITY DISORDER
     Dosage: 10 mg, qd

REACTIONS (1)
  - Gynaecomastia [Recovered/Resolved]
